FAERS Safety Report 17702757 (Version 1)
Quarter: 2020Q2

REPORT INFORMATION
  Report Type: Spontaneous
  Country: DE (occurrence: DE)
  Receive Date: 20200424
  Receipt Date: 20200424
  Transmission Date: 20200714
  Serious: Yes (Hospitalization)
  Sender: FDA-Public Use
  Company Number: DE-BIOGEN-2019BI00757441

PATIENT
  Age: 18 Year
  Sex: Female
  Weight: 45 kg

DRUGS (4)
  1. SPINRAZA [Suspect]
     Active Substance: NUSINERSEN
     Indication: SPINAL MUSCULAR ATROPHY
     Route: 037
     Dates: start: 20190131
  2. ACC [Concomitant]
     Active Substance: ACETYLCYSTEINE
     Indication: SECRETION DISCHARGE
     Dosage: FOR YEARS
     Route: 048
  3. SALBUTAMOL [Concomitant]
     Active Substance: ALBUTEROL
     Indication: SECRETION DISCHARGE
     Dosage: FOR YEARS
     Route: 065
  4. ATROVENT [Concomitant]
     Active Substance: IPRATROPIUM BROMIDE
     Indication: PRODUCT USED FOR UNKNOWN INDICATION
     Dosage: FOR YEARS
     Route: 065

REACTIONS (10)
  - Gastrointestinal infection [Recovered/Resolved]
  - Post lumbar puncture syndrome [Unknown]
  - Meningitis aseptic [Recovered/Resolved]
  - Drug ineffective [Unknown]
  - Infection [Unknown]
  - Spinal muscular atrophy [Unknown]
  - Meningism [Recovered/Resolved]
  - Procedural pain [Unknown]
  - Procedural nausea [Unknown]
  - Pleocytosis [Unknown]

NARRATIVE: CASE EVENT DATE: 20190215
